FAERS Safety Report 9965119 (Version 1)
Quarter: 2014Q1

REPORT INFORMATION
  Report Type: Report from Study
  Country: US (occurrence: US)
  Receive Date: 20140305
  Receipt Date: 20140305
  Transmission Date: 20141002
  Serious: No
  Sender: FDA-Public Use
  Company Number: US-ABBVIE-13P-163-1128813-00

PATIENT
  Age: 56 Year
  Sex: Female

DRUGS (2)
  1. HUMIRA [Suspect]
     Indication: COLITIS ULCERATIVE
     Dates: start: 20130504
  2. NATURE THROID [Concomitant]
     Indication: HYPOTHYROIDISM
     Dosage: 2 GM DAILY

REACTIONS (5)
  - Diarrhoea haemorrhagic [Recovering/Resolving]
  - Rash [Unknown]
  - Erythema [Unknown]
  - Drug ineffective [Unknown]
  - Skin exfoliation [Unknown]
